FAERS Safety Report 7208113-6 (Version None)
Quarter: 2010Q4

REPORT INFORMATION
  Report Type: 
  Country: None (occurrence: None)
  Receive Date: 20101230
  Receipt Date: 20101230
  Transmission Date: 20110411
  Serious: Yes (Other)
  Sender: FDA-Public Use
  Company Number: None

PATIENT
  Age: 77 Year
  Sex: Male
  Weight: 244.9424 kg

DRUGS (2)
  1. FLUOROURACIL [Suspect]
     Dosage: COVER/SPREAD MORN AND NIGHT AREAS 3 WK OF RECOM. 4 WKS
  2. CICLOPORIX LOTION [Concomitant]

REACTIONS (4)
  - ERYTHEMA [None]
  - FUNGAL INFECTION [None]
  - HAEMORRHAGE [None]
  - SCROTAL SWELLING [None]
